FAERS Safety Report 8989844 (Version 1)
Quarter: 2012Q4

REPORT INFORMATION
  Report Type: 
  Country: US (occurrence: US)
  Receive Date: 20121228
  Receipt Date: 20121228
  Transmission Date: 20130627
  Serious: Yes (Other)
  Sender: FDA-Public Use
  Company Number: US-JNJFOC-20121209277

PATIENT
  Weight: 58.97 kg

DRUGS (1)
  1. PANCREAZE [Suspect]
     Indication: ENZYME SUPPLEMENTATION
     Route: 065

REACTIONS (1)
  - Haematochezia [Recovered/Resolved]
